FAERS Safety Report 9417096 (Version 1)
Quarter: 2013Q3

REPORT INFORMATION
  Report Type: Spontaneous
  Country: US (occurrence: US)
  Receive Date: 20130724
  Receipt Date: 20130724
  Transmission Date: 20140515
  Serious: No
  Sender: FDA-Public Use
  Company Number: US-BAYER-2013-089718

PATIENT
  Sex: 0

DRUGS (7)
  1. ALEVE CAPLET [Suspect]
     Indication: TOOTHACHE
     Dosage: UNK
  2. BAYER GENUINE ASPIRIN ORIGINAL STRENGTH [Suspect]
     Indication: TOOTHACHE
     Dosage: UNK
  3. TYLENOL [PARACETAMOL] [Concomitant]
     Dosage: UNK
  4. ADVIL [Concomitant]
     Dosage: UNK
  5. ORAJEL [Concomitant]
     Dosage: UNK
  6. PEROXIDE [Concomitant]
     Dosage: UNK
  7. VALIUM [Concomitant]
     Dosage: UNK

REACTIONS (1)
  - Drug ineffective [None]
